FAERS Safety Report 10682284 (Version 1)
Quarter: 2014Q4

REPORT INFORMATION
  Report Type: Spontaneous
  Country: US (occurrence: US)
  Receive Date: 20141230
  Receipt Date: 20141230
  Transmission Date: 20150529
  Serious: Yes (Other)
  Sender: FDA-Public Use
  Company Number: US-SA-2014SA176889

PATIENT
  Age: 78 Year
  Sex: Female

DRUGS (2)
  1. LANTUS SOLOSTAR [Suspect]
     Active Substance: INSULIN GLARGINE
     Dosage: DOSE:100 UNIT(S)
     Route: 065
     Dates: start: 2012
  2. SOLOSTAR [Concomitant]
     Active Substance: DEVICE
     Dates: start: 2012

REACTIONS (3)
  - Hypoacusis [Unknown]
  - Visual acuity reduced [Unknown]
  - Cataract operation [Unknown]

NARRATIVE: CASE EVENT DATE: 2014
